FAERS Safety Report 20156338 (Version 1)
Quarter: 2021Q4

REPORT INFORMATION
  Report Type: Spontaneous
  Country: BR (occurrence: BR)
  Receive Date: 20211207
  Receipt Date: 20211207
  Transmission Date: 20220303
  Serious: Yes (Death)
  Sender: FDA-Public Use
  Company Number: BR-PFIZER INC-202101663928

PATIENT
  Age: 39 Year
  Sex: Female

DRUGS (3)
  1. GEMTUZUMAB OZOGAMICIN [Suspect]
     Active Substance: GEMTUZUMAB OZOGAMICIN
     Indication: Acute leukaemia
     Dosage: 3.1 MG/M2, 1X/DAY (INFUSION)
  2. TOPOTECAN HYDROCHLORIDE [Suspect]
     Active Substance: TOPOTECAN HYDROCHLORIDE
     Indication: Acute leukaemia
     Dosage: UNK
  3. CYTARABINE [Suspect]
     Active Substance: CYTARABINE
     Indication: Acute leukaemia
     Dosage: UNK

REACTIONS (1)
  - Septic shock [Fatal]
